FAERS Safety Report 4829284-2 (Version None)
Quarter: 2005Q4

REPORT INFORMATION
  Report Type: 
  Country: None (occurrence: None)
  Receive Date: 20051116
  Receipt Date: 20051102
  Transmission Date: 20060501
  Serious: Yes (Hospitalization)
  Sender: FDA-Public Use
  Company Number: JP-JPN-A20052654

PATIENT
  Age: 18 Year
  Sex: Male

DRUGS (1)
  1. FLUTIDE [Suspect]
     Dosage: 100MCG TWICE PER DAY
     Route: 055
     Dates: start: 20050807, end: 20051107

REACTIONS (1)
  - WHITE BLOOD CELL COUNT INCREASED [None]
